FAERS Safety Report 19587921 (Version 1)
Quarter: 2021Q3

REPORT INFORMATION
  Report Type: Spontaneous
  Country: US (occurrence: US)
  Receive Date: 20210721
  Receipt Date: 20210721
  Transmission Date: 20211014
  Serious: No
  Sender: FDA-Public Use
  Company Number: US-ELI_LILLY_AND_COMPANY-US202107008715

PATIENT
  Age: 63 Year
  Sex: Female

DRUGS (1)
  1. EMGALITY [Suspect]
     Active Substance: GALCANEZUMAB-GNLM
     Indication: PRODUCT USED FOR UNKNOWN INDICATION
     Dosage: 120 MG, MONTHLY (1/M)
     Route: 065

REACTIONS (2)
  - Product dose omission issue [Unknown]
  - Stress [Unknown]

NARRATIVE: CASE EVENT DATE: 20210630
